FAERS Safety Report 6099801-6 (Version None)
Quarter: 2009Q1

REPORT INFORMATION
  Report Type: 
  Country: None (occurrence: None)
  Receive Date: 20090303
  Receipt Date: 20090220
  Transmission Date: 20090719
  Serious: Yes (Other)
  Sender: FDA-Public Use
  Company Number: PHHY2009DE06274

PATIENT
  Sex: Female
  Weight: 54 kg

DRUGS (4)
  1. ZOMETA [Suspect]
     Indication: RENAL CANCER
     Route: 042
  2. SUNITINIB MALATE [Suspect]
     Indication: RENAL CANCER METASTATIC
     Dosage: ONCE DAILY
     Dates: start: 20080320
  3. ACETYLSALICYLIC ACID [Concomitant]
  4. METOCLOPRAMIDE [Concomitant]
     Dosage: 30 DROPS DAILY

REACTIONS (1)
  - OSTEONECROSIS [None]
